FAERS Safety Report 5296622-9 (Version None)
Quarter: 2007Q2

REPORT INFORMATION
  Report Type: 
  Country: None (occurrence: None)
  Receive Date: 20070413
  Receipt Date: 20070403
  Transmission Date: 20071010
  Serious: Yes (Life-Threatening, Other)
  Sender: FDA-Public Use
  Company Number: US-PFIZER INC-2007004879

PATIENT
  Sex: Male
  Weight: 70.3 kg

DRUGS (1)
  1. LIPITOR [Suspect]
     Indication: BLOOD CHOLESTEROL INCREASED

REACTIONS (4)
  - CARDIAC OPERATION [None]
  - CARDIAC VALVE DISEASE [None]
  - DYSPNOEA [None]
  - PAIN IN EXTREMITY [None]
